FAERS Safety Report 14999783 (Version 1)
Quarter: 2018Q2

REPORT INFORMATION
  Report Type: Spontaneous
  Country: US (occurrence: US)
  Receive Date: 20180523
  Receipt Date: 20180523
  Transmission Date: 20180711
  Serious: Yes (Other)
  Sender: FDA-Public Use
  Company Number: None

PATIENT
  Age: 47 Year
  Sex: Male
  Weight: 106.2 kg

DRUGS (3)
  1. ATORVASTATIN [Concomitant]
     Active Substance: ATORVASTATIN
  2. BENAZEPRIL HCL 5MG TABS [Suspect]
     Active Substance: BENAZEPRIL HYDROCHLORIDE
     Indication: BLOOD PRESSURE INCREASED
     Dosage: ?          QUANTITY:180 DF DOSAGE FORM;?
     Route: 048
     Dates: start: 20180510, end: 20180512
  3. POTASSIUM CITRATE. [Concomitant]
     Active Substance: POTASSIUM CITRATE

REACTIONS (3)
  - Product lot number issue [None]
  - Blood pressure increased [None]
  - Drug ineffective [None]

NARRATIVE: CASE EVENT DATE: 20180512
